FAERS Safety Report 11997664 (Version 1)
Quarter: 2016Q1

REPORT INFORMATION
  Report Type: Spontaneous
  Country: US (occurrence: US)
  Receive Date: 20160203
  Receipt Date: 20160203
  Transmission Date: 20160526
  Serious: No
  Sender: FDA-Public Use
  Company Number: US-ANACOR-2015ANA00206

PATIENT
  Sex: Female
  Weight: 81.63 kg

DRUGS (3)
  1. KERYDIN [Suspect]
     Active Substance: TAVABOROLE
     Indication: ONYCHOMYCOSIS
     Dosage: UNK UNK, 1X/DAY
     Route: 061
     Dates: start: 20151001
  2. LEVOXYL [Concomitant]
     Active Substance: LEVOTHYROXINE SODIUM
     Dosage: 125 ?G, 1X/DAY
  3. VITAMIN D3 [Concomitant]
     Active Substance: CHOLECALCIFEROL
     Dosage: 2000 U, 1X/DAY

REACTIONS (3)
  - Onycholysis [Recovered/Resolved]
  - Onychoclasis [Recovered/Resolved]
  - Onychomadesis [Recovering/Resolving]

NARRATIVE: CASE EVENT DATE: 2015
